FAERS Safety Report 11363590 (Version 1)
Quarter: 2015Q3

REPORT INFORMATION
  Report Type: Report from Study
  Country: FR (occurrence: FR)
  Receive Date: 20150811
  Receipt Date: 20150811
  Transmission Date: 20151125
  Serious: Yes (Hospitalization)
  Sender: FDA-Public Use
  Company Number: FR-ACCORD-032946

PATIENT
  Age: 92 Year
  Sex: Female

DRUGS (1)
  1. METHOTREXATE [Suspect]
     Active Substance: METHOTREXATE
     Indication: PEMPHIGOID
     Dosage: MISADMINISTRATION: 2.5 MG/D, 5 D A WEEK, FOR 3 WK

REACTIONS (5)
  - Macrocytosis [Recovering/Resolving]
  - Mouth ulceration [Recovered/Resolved]
  - Thrombocytopenia [Recovering/Resolving]
  - Incorrect dose administered [Unknown]
  - Anaemia [Recovering/Resolving]
